FAERS Safety Report 6407936-0 (Version None)
Quarter: 2009Q4

REPORT INFORMATION
  Report Type: 
  Country: None (occurrence: None)
  Receive Date: 20091008
  Receipt Date: 20090927
  Transmission Date: 20100525
  Serious: Yes (Life-Threatening, Hospitalization)
  Sender: FDA-Public Use
  Company Number: WAES 0907USA00898

PATIENT
  Age: 35 Year
  Sex: Female
  Weight: 34.0198 kg

DRUGS (9)
  1. ISENTRESS [Suspect]
     Indication: HIV INFECTION
     Dosage: 400 MG/BID/PO
     Route: 048
     Dates: start: 20090621, end: 20090707
  2. TRUVADA [Suspect]
     Indication: HIV INFECTION
     Dosage: 1 TAB/DAILY/PO
     Route: 048
     Dates: start: 20090621, end: 20090707
  3. PLACEBO (UNSPECIFIED) UNK [Suspect]
     Dates: start: 20090621, end: 20090707
  4. BACTRIM DS [Concomitant]
  5. BRICAREX [Concomitant]
  6. LEVODAY [Concomitant]
  7. TONOFERON [Concomitant]
  8. VITANEURIN (FURSULTIAMINE (+) HY [Concomitant]
  9. ZEVIT CAPSULES [Concomitant]

REACTIONS (3)
  - HYPOXIA [None]
  - PLEURAL EFFUSION [None]
  - TUBERCULOSIS [None]
